FAERS Safety Report 14675849 (Version 1)
Quarter: 2018Q1

REPORT INFORMATION
  Report Type: Spontaneous
  Country: US (occurrence: US)
  Receive Date: 20180323
  Receipt Date: 20180323
  Transmission Date: 20180509
  Serious: Yes (Hospitalization)
  Sender: FDA-Public Use
  Company Number: US-JNJFOC-20180321354

PATIENT
  Age: 76 Year
  Sex: Female
  Weight: 59.42 kg

DRUGS (3)
  1. NINLARO [Suspect]
     Active Substance: IXAZOMIB CITRATE
     Indication: PLASMA CELL MYELOMA
     Dosage: 4 MG ON DAYS 1, 8 AND 15 OF EVERY 28 DAYS CYCLE
     Route: 048
     Dates: start: 2015, end: 201801
  2. XARELTO [Suspect]
     Active Substance: RIVAROXABAN
     Indication: DEEP VEIN THROMBOSIS
     Route: 048
     Dates: start: 2016
  3. REVLIMID [Suspect]
     Active Substance: LENALIDOMIDE
     Indication: PRODUCT USED FOR UNKNOWN INDICATION
     Route: 065
     Dates: end: 201801

REACTIONS (2)
  - Plasma cell myeloma [Unknown]
  - Blood urine present [Unknown]

NARRATIVE: CASE EVENT DATE: 201801
